FAERS Safety Report 6609141-1 (Version None)
Quarter: 2010Q1

REPORT INFORMATION
  Report Type: 
  Country: None (occurrence: None)
  Receive Date: 20100226
  Receipt Date: 20100226
  Transmission Date: 20100710
  Serious: Yes (Life-Threatening)
  Sender: FDA-Public Use
  Company Number: None

PATIENT
  Age: 49 Year
  Sex: Male
  Weight: 69.8539 kg

DRUGS (9)
  1. NORVIR [Suspect]
     Indication: HIV INFECTION
     Dosage: 100 DAILY PO
     Route: 048
  2. PREZISTA [Suspect]
     Indication: HIV INFECTION
     Dosage: 800 DAILY PO
     Route: 048
  3. CALCIUM SUPPLEMENT [Concomitant]
  4. FLAXSEED [Concomitant]
  5. MULTI-VITAMIN [Concomitant]
  6. LAMIVUDINE [Concomitant]
  7. ZIAGEN [Concomitant]
  8. NORVIR [Concomitant]
  9. PREZISTA [Concomitant]

REACTIONS (1)
  - VENTRICULAR FIBRILLATION [None]
